FAERS Safety Report 9954561 (Version 1)
Quarter: 2014Q1

REPORT INFORMATION
  Report Type: Report from Study
  Country: FI (occurrence: FI)
  Receive Date: 20140304
  Receipt Date: 20140304
  Transmission Date: 20141002
  Serious: Yes (Other)
  Sender: FDA-Public Use
  Company Number: FI-MYLANLABS-2014S1004126

PATIENT
  Age: 61 Year
  Sex: Male

DRUGS (14)
  1. VANCOMYCIN [Suspect]
     Indication: DEVICE RELATED INFECTION
     Route: 065
  2. RIFAMPICIN [Suspect]
     Indication: DEVICE RELATED INFECTION
     Dosage: 600MG DAILY
     Route: 065
  3. PANTOPRAZOLE [Suspect]
     Dosage: 40MG OCCASIONALLY; THEN DAILY
     Route: 065
  4. PANTOPRAZOLE [Suspect]
     Dosage: DAILY
     Route: 065
  5. CEFUROXIME [Suspect]
     Indication: DEVICE RELATED INFECTION
     Route: 065
  6. CLOXACILLIN [Suspect]
     Indication: DEVICE RELATED INFECTION
     Route: 065
  7. MEROPENEM [Suspect]
     Indication: DEVICE RELATED INFECTION
     Route: 065
  8. LEVOFLOXACIN [Concomitant]
     Indication: DEVICE RELATED INFECTION
     Route: 065
  9. NAPROXEN [Concomitant]
     Dosage: 500MG 1-3 TIMES DAILY
     Route: 065
  10. PANADEINE CO [Concomitant]
     Dosage: PARACETAMOL 500MG, CODEINE PHOSPHATE 30MG DAILY
     Route: 065
  11. METRONIDAZOLE [Concomitant]
     Indication: DEVICE RELATED INFECTION
     Route: 065
  12. METHYLPREDNISOLONE [Concomitant]
     Indication: DRUG REACTION WITH EOSINOPHILIA AND SYSTEMIC SYMPTOMS
     Dosage: THEN TAPERED TO 12MG AFTER 2W
     Route: 065
  13. DAPTOMYCIN [Concomitant]
     Indication: DEVICE RELATED INFECTION
     Dosage: 500MG DAILY
     Route: 065
  14. METHYLPREDNISOLONE [Concomitant]
     Indication: DRUG REACTION WITH EOSINOPHILIA AND SYSTEMIC SYMPTOMS
     Dosage: TAPERED TO 12MG
     Route: 065

REACTIONS (2)
  - Drug reaction with eosinophilia and systemic symptoms [Recovering/Resolving]
  - Toxic epidermal necrolysis [Recovering/Resolving]
